FAERS Safety Report 10186359 (Version 1)
Quarter: 2014Q2

REPORT INFORMATION
  Report Type: Spontaneous
  Country: US (occurrence: US)
  Receive Date: 20140521
  Receipt Date: 20140521
  Transmission Date: 20141212
  Serious: No
  Sender: FDA-Public Use
  Company Number: US-ASTRAZENECA-2013SE70581

PATIENT
  Age: 81 Year
  Sex: Male
  Weight: 78.5 kg

DRUGS (5)
  1. PULMICORT RESPULES [Suspect]
     Indication: NASAL DISORDER
     Dosage: 1TSP OF SALT AND 9 DROPS OF PULMICORT RESPULES INTO WARM WATER, THEN PUTS IT INTO NOSE BID
     Route: 045
     Dates: start: 20130917
  2. ZANTAC [Concomitant]
     Dosage: 300MG
  3. PEPSID [Concomitant]
     Dosage: QD
  4. NASOCORT [Concomitant]
     Indication: NASAL DISORDER
     Route: 045
     Dates: end: 20130916
  5. PREDNISONE [Concomitant]

REACTIONS (5)
  - Nasal congestion [Unknown]
  - Fatigue [Not Recovered/Not Resolved]
  - Sleep disorder due to general medical condition, insomnia type [Not Recovered/Not Resolved]
  - Off label use [Unknown]
  - Drug administration error [Unknown]
